FAERS Safety Report 11585659 (Version 2)
Quarter: 2016Q1

REPORT INFORMATION
  Report Type: Spontaneous
  Country: IE (occurrence: IE)
  Receive Date: 20151001
  Receipt Date: 20160218
  Transmission Date: 20160525
  Serious: Yes (Other)
  Sender: FDA-Public Use
  Company Number: IE-009507513-1509IRL014570

PATIENT
  Sex: Male

DRUGS (1)
  1. DAPTOMYCIN. [Suspect]
     Active Substance: DAPTOMYCIN
     Indication: PRODUCT USED FOR UNKNOWN INDICATION
     Dosage: LONGER THAN 2 WEEKS
     Route: 065

REACTIONS (4)
  - Staphylococcal infection [Unknown]
  - Drug resistance [Unknown]
  - Antimicrobial susceptibility test resistant [Unknown]
  - Drug ineffective [Unknown]
